FAERS Safety Report 25031991 (Version 1)
Quarter: 2025Q1

REPORT INFORMATION
  Report Type: Spontaneous
  Country: US (occurrence: None)
  Receive Date: 20250303
  Receipt Date: 20250303
  Transmission Date: 20250409
  Serious: Yes (Hospitalization)
  Sender: FDA-CTU
  Company Number: None

PATIENT
  Age: 79 Year
  Sex: Male
  Weight: 105 kg

DRUGS (1)
  1. INFED [Suspect]
     Active Substance: IRON DEXTRAN
     Indication: Anaemia
     Route: 042
     Dates: start: 20250228, end: 20250228

REACTIONS (8)
  - Infusion related reaction [None]
  - Flushing [None]
  - Bradycardia [None]
  - Hyperhidrosis [None]
  - Chest pain [None]
  - Dyspnoea [None]
  - Hypotension [None]
  - Cardio-respiratory arrest [None]

NARRATIVE: CASE EVENT DATE: 20250228
